FAERS Safety Report 4757684-8 (Version None)
Quarter: 2005Q3

REPORT INFORMATION
  Report Type: 
  Country: None (occurrence: None)
  Receive Date: 20050831
  Receipt Date: 20050822
  Transmission Date: 20060218
  Serious: Yes (Other)
  Sender: FDA-Public Use
  Company Number: JP-GLAXOSMITHKLINE-B0391818A

PATIENT
  Age: 70 Year
  Sex: Male

DRUGS (4)
  1. ZANTAC [Suspect]
     Dosage: 100MG PER DAY
     Route: 042
     Dates: start: 20050815, end: 20050819
  2. CARTOL [Concomitant]
     Route: 048
  3. AMINOLEBAN [Concomitant]
     Route: 065
  4. SERENACE [Concomitant]
     Dosage: 1 PER DAY
     Route: 065

REACTIONS (1)
  - RHABDOMYOLYSIS [None]
